FAERS Safety Report 14925134 (Version 1)
Quarter: 2018Q2

REPORT INFORMATION
  Report Type: Spontaneous
  Country: TW (occurrence: TW)
  Receive Date: 20180522
  Receipt Date: 20180522
  Transmission Date: 20180711
  Serious: Yes (Life-Threatening, Hospitalization, Other)
  Sender: FDA-Public Use
  Company Number: TW-MYLANLABS-2018M1033102

PATIENT
  Age: 57 Year
  Sex: Male

DRUGS (3)
  1. HYDROCORTISONE. [Concomitant]
     Active Substance: HYDROCORTISONE
     Indication: HYPERTHYROIDISM
     Route: 065
  2. AMIODARONE [Suspect]
     Active Substance: AMIODARONE
     Indication: ATRIAL FIBRILLATION
     Route: 065
  3. PROPYLTHIOURACIL. [Suspect]
     Active Substance: PROPYLTHIOURACIL
     Indication: HYPERTHYROIDISM
     Route: 065

REACTIONS (6)
  - Cardiomegaly [Recovering/Resolving]
  - Hyperthyroidism [Recovered/Resolved]
  - Pulmonary oedema [Recovering/Resolving]
  - Acute respiratory failure [Recovering/Resolving]
  - Thyrotoxic crisis [Recovered/Resolved]
  - Cardiac failure [Recovering/Resolving]
